FAERS Safety Report 20247283 (Version 1)
Quarter: 2021Q4

REPORT INFORMATION
  Report Type: Spontaneous
  Country: US (occurrence: US)
  Receive Date: 20211229
  Receipt Date: 20211229
  Transmission Date: 20220303
  Serious: No
  Sender: FDA-Public Use
  Company Number: US-BEH-2021139950

PATIENT
  Sex: Female
  Weight: 83.447 kg

DRUGS (1)
  1. PRIVIGEN [Suspect]
     Active Substance: HUMAN IMMUNOGLOBULIN G
     Indication: Pulmonary hypertension
     Dosage: 40 GRAM, QMT
     Route: 042
     Dates: start: 202109

REACTIONS (3)
  - Weight increased [Unknown]
  - No adverse event [Unknown]
  - Off label use [Unknown]
